FAERS Safety Report 5709521-2 (Version None)
Quarter: 2008Q2

REPORT INFORMATION
  Report Type: 
  Country: None (occurrence: None)
  Receive Date: 20080418
  Receipt Date: 20080408
  Transmission Date: 20081010
  Serious: Yes (Other)
  Sender: FDA-Public Use
  Company Number: US-BAYER-200811174BCC

PATIENT
  Age: 41 Year
  Sex: Male
  Weight: 75 kg

DRUGS (1)
  1. ALEVE [Suspect]
     Indication: PAIN
     Dosage: AS USED: 440 MG  UNIT DOSE: 220 MG
     Route: 048
     Dates: start: 20080310

REACTIONS (3)
  - ABDOMINAL PAIN UPPER [None]
  - GASTROINTESTINAL HAEMORRHAGE [None]
  - NAUSEA [None]
